FAERS Safety Report 15048316 (Version 1)
Quarter: 2018Q2

REPORT INFORMATION
  Report Type: Spontaneous
  Country: JP (occurrence: JP)
  Receive Date: 20180622
  Receipt Date: 20180622
  Transmission Date: 20180711
  Serious: Yes (Hospitalization)
  Sender: FDA-Public Use
  Company Number: JP-009507513-1806JPN008889

PATIENT
  Age: 69 Year
  Sex: Male

DRUGS (3)
  1. SITAGLIPTIN PHOSPHATE [Suspect]
     Active Substance: SITAGLIPTIN PHOSPHATE
     Indication: TYPE 2 DIABETES MELLITUS
     Dosage: 25 MG (STRENGTH: 12.5MG,25MG,50MG,100MG)
     Route: 048
     Dates: start: 201610, end: 201710
  2. SITAGLIPTIN PHOSPHATE [Suspect]
     Active Substance: SITAGLIPTIN PHOSPHATE
     Dosage: 50 MG (25 MG (STRENGTH: 12.5MG,25MG,50MG,100MG))
     Route: 048
     Dates: start: 201710, end: 201804
  3. METGLUCO [Concomitant]
     Active Substance: METFORMIN HYDROCHLORIDE

REACTIONS (3)
  - Colitis ulcerative [Not Recovered/Not Resolved]
  - Haemorrhoids [Unknown]
  - Anal polyp [Unknown]

NARRATIVE: CASE EVENT DATE: 2017
